FAERS Safety Report 6394918-0 (Version None)
Quarter: 2009Q4

REPORT INFORMATION
  Report Type: 
  Country: None (occurrence: None)
  Receive Date: 20091009
  Receipt Date: 20090930
  Transmission Date: 20100525
  Serious: Yes (Other)
  Sender: FDA-Public Use
  Company Number: US-AMGEN-QUU363578

PATIENT
  Sex: Female
  Weight: 67 kg

DRUGS (17)
  1. ARANESP [Suspect]
     Indication: DIALYSIS
     Route: 065
     Dates: start: 20060109
  2. PROCRIT [Suspect]
     Indication: DIALYSIS
     Dates: start: 20031001, end: 20041220
  3. SENSIPAR [Concomitant]
     Indication: HYPERPARATHYROIDISM SECONDARY
  4. RENAGEL [Concomitant]
     Route: 048
  5. FERRLECIT [Concomitant]
  6. TEMAZEPAM [Concomitant]
  7. ZANTAC [Concomitant]
  8. LEVOXYL [Concomitant]
  9. TRENTAL [Concomitant]
  10. VENOFER [Concomitant]
  11. BENICAR [Concomitant]
  12. ASPIRIN [Concomitant]
  13. TYLENOL (CAPLET) [Concomitant]
  14. CLONIDINE [Concomitant]
  15. ZEMPLAR [Concomitant]
     Route: 042
  16. BENADRYL [Concomitant]
  17. UNSPECIFIED MEDICATION [Concomitant]

REACTIONS (12)
  - ANAEMIA VITAMIN B12 DEFICIENCY [None]
  - ARTERIOVENOUS FISTULA ANEURYSM [None]
  - CALCIPHYLAXIS [None]
  - CONSTIPATION [None]
  - DYSPHAGIA [None]
  - HAEMOGLOBIN DECREASED [None]
  - LOCAL SWELLING [None]
  - OCCULT BLOOD POSITIVE [None]
  - POLYP COLORECTAL [None]
  - THERAPEUTIC RESPONSE DECREASED [None]
  - URINARY TRACT INFECTION [None]
  - VAGINAL INFECTION [None]
